FAERS Safety Report 20342605 (Version 1)
Quarter: 2022Q1

REPORT INFORMATION
  Report Type: Spontaneous
  Country: US (occurrence: US)
  Receive Date: 20220117
  Receipt Date: 20220117
  Transmission Date: 20220424
  Serious: Yes (Death)
  Sender: FDA-Public Use
  Company Number: US-PARI RESPIRATORY EQUIPMENT, INC.-2022PAR00002

PATIENT
  Age: 11 Year
  Sex: Female
  Weight: 35.374 kg

DRUGS (5)
  1. KITABIS PAK [Suspect]
     Active Substance: TOBRAMYCIN
     Indication: Lung disorder
     Dosage: 300 MG, VIA NEBULIZER, 2X/DAY FOR 28 DAYS ON AND 28 DAYS OFF
  2. KITABIS PAK [Suspect]
     Active Substance: TOBRAMYCIN
     Indication: Bacterial infection
  3. VIMPAT [Concomitant]
     Active Substance: LACOSAMIDE
  4. VALPROIC ACID [Concomitant]
     Active Substance: VALPROIC ACID
  5. LEVOCARNITINE [Concomitant]
     Active Substance: LEVOCARNITINE

REACTIONS (1)
  - Death [Fatal]

NARRATIVE: CASE EVENT DATE: 20211103
